FAERS Safety Report 9291368 (Version 1)
Quarter: 2013Q2

REPORT INFORMATION
  Report Type: Report from Study
  Country: US (occurrence: US)
  Receive Date: 20130515
  Receipt Date: 20130515
  Transmission Date: 20140414
  Serious: Yes (Other)
  Sender: FDA-Public Use
  Company Number: US-US-EMD SERONO, INC.-7203705

PATIENT
  Age: 48 Year
  Sex: Female
  Weight: 99 kg

DRUGS (12)
  1. REBIF [Suspect]
     Indication: MULTIPLE SCLEROSIS
     Route: 058
     Dates: start: 20120830
  2. PREDNISONE [Concomitant]
     Indication: ASTHMA
     Route: 048
     Dates: start: 20121003
  3. ZOLOFT                             /01011401/ [Concomitant]
     Indication: DEPRESSION
     Route: 048
     Dates: start: 201212
  4. ZOLOFT                             /01011401/ [Concomitant]
     Dosage: 150 MG ALTERNATING WITH 200 MG EVERY OTHER DAY
     Route: 048
  5. KEPPRA [Concomitant]
     Indication: CONVULSION
     Route: 048
     Dates: start: 2012
  6. VITAMIN D3 [Concomitant]
     Indication: PRODUCT USED FOR UNKNOWN INDICATION
  7. SPIRIVA [Concomitant]
     Indication: PRODUCT USED FOR UNKNOWN INDICATION
  8. SINGULAIR                          /01362601/ [Concomitant]
     Indication: PRODUCT USED FOR UNKNOWN INDICATION
  9. FLUTICASONE [Concomitant]
     Indication: PRODUCT USED FOR UNKNOWN INDICATION
  10. VITAMIN B12                        /00056201/ [Concomitant]
     Indication: PRODUCT USED FOR UNKNOWN INDICATION
  11. ZYRTEC                             /00884302/ [Concomitant]
     Indication: PRODUCT USED FOR UNKNOWN INDICATION
  12. ALBUTEROL                          /00139501/ [Concomitant]
     Indication: PRODUCT USED FOR UNKNOWN INDICATION
     Route: 055

REACTIONS (18)
  - Grand mal convulsion [Recovering/Resolving]
  - Ecchymosis [Unknown]
  - Laceration [Unknown]
  - Urinary tract infection [Recovered/Resolved]
  - Micturition urgency [Unknown]
  - Anxiety [Unknown]
  - Urine flow decreased [Unknown]
  - Dizziness postural [Unknown]
  - Eosinophil count increased [Unknown]
  - Insomnia [Unknown]
  - Dyspnoea [Unknown]
  - Back pain [Unknown]
  - Urinary incontinence [Unknown]
  - Somnolence [Unknown]
  - Headache [Unknown]
  - Lymphocyte count decreased [Unknown]
  - Influenza like illness [Unknown]
  - Fatigue [Unknown]
